FAERS Safety Report 11387155 (Version 1)
Quarter: 2015Q3

REPORT INFORMATION
  Report Type: Spontaneous
  Country: US (occurrence: None)
  Receive Date: 20150814
  Receipt Date: 20150814
  Transmission Date: 20151125
  Serious: Yes (Hospitalization)
  Sender: FDA-Public Use
  Company Number: None

PATIENT
  Age: 52 Year
  Sex: Female
  Weight: 61.3 kg

DRUGS (15)
  1. INHOUSE [Concomitant]
  2. PHOSLO [Concomitant]
     Active Substance: CALCIUM ACETATE
  3. HEPARIN [Concomitant]
     Active Substance: HEPARIN SODIUM
  4. COZAAR [Concomitant]
     Active Substance: LOSARTAN POTASSIUM
  5. DIPHENHYDRAMINE. [Concomitant]
     Active Substance: DIPHENHYDRAMINE
  6. ASA [Concomitant]
     Active Substance: ASPIRIN
  7. EPOGEN [Concomitant]
     Active Substance: ERYTHROPOIETIN
  8. NEPHRO VITE RX [Concomitant]
     Active Substance: ASCORBIC ACID\BIOTIN\CALCIUM PANTOTHENATE\CYANOCOBALAMIN\FOLIC ACID\NIACINAMIDE\PYRIDOXINE HYDROCHLORIDE\RIBOFLAVIN\THIAMINE MONONITRATE
  9. KEPPRA [Concomitant]
     Active Substance: LEVETIRACETAM
  10. CLARITIN [Concomitant]
     Active Substance: LORATADINE
  11. LANTUS [Suspect]
     Active Substance: INSULIN GLARGINE
     Indication: DIABETES MELLITUS
     Dosage: 10 UNITS NIGHTLY  SQ  CHRONIC USE RECENT INCREASE
     Route: 058
  12. HUMALOG [Suspect]
     Active Substance: INSULIN LISPRO
     Indication: DIABETES MELLITUS
     Dosage: SSI SQ?CHRONIC
     Route: 058
  13. LOPRESSOR [Concomitant]
     Active Substance: METOPROLOL TARTRATE
  14. NORVASC [Concomitant]
     Active Substance: AMLODIPINE BESYLATE
  15. SARNA [Concomitant]
     Active Substance: CAMPHOR (NATURAL)\MENTHOL\PRAMOXINE HYDROCHLORIDE

REACTIONS (2)
  - Hypoglycaemia [None]
  - Mental status changes [None]

NARRATIVE: CASE EVENT DATE: 20150207
